FAERS Safety Report 6643666-8 (Version None)
Quarter: 2010Q1

REPORT INFORMATION
  Report Type: 
  Country: None (occurrence: None)
  Receive Date: 20100321
  Receipt Date: 20100309
  Transmission Date: 20100710
  Serious: Yes (Other)
  Sender: FDA-Public Use
  Company Number: US-JNJFOC-20100303170

PATIENT
  Sex: Female
  Weight: 90 kg

DRUGS (23)
  1. REMICADE [Suspect]
     Indication: CROHN'S DISEASE
     Route: 042
  2. SOMA [Concomitant]
  3. XANAX [Concomitant]
  4. AMITRIPTYLINE HCL [Concomitant]
  5. MAXALT [Concomitant]
  6. GABAPENTIN [Concomitant]
  7. CIPRO [Concomitant]
  8. BACTRIM [Concomitant]
  9. PHENERGAN HCL [Concomitant]
  10. ZOFRAN [Concomitant]
  11. KYTRIL [Concomitant]
  12. DIFLUCAN [Concomitant]
  13. TRAZODONE HCL [Concomitant]
  14. LEXAPRO [Concomitant]
  15. IMITREX [Concomitant]
  16. LEVSIN [Concomitant]
  17. ARANESP [Concomitant]
  18. IRON [Concomitant]
  19. ALLEGRA [Concomitant]
  20. POTASSIUM [Concomitant]
  21. VITAMIN D W/ CALCIUM [Concomitant]
  22. VITAMIN B-12 [Concomitant]
  23. LOMOTIL [Concomitant]

REACTIONS (1)
  - AUTOIMMUNE DISORDER [None]
